FAERS Safety Report 4998042-0 (Version None)
Quarter: 2006Q2

REPORT INFORMATION
  Report Type: 
  Country: None (occurrence: None)
  Receive Date: 20060510
  Receipt Date: 20060504
  Transmission Date: 20061013
  Serious: Yes (Hospitalization)
  Sender: FDA-Public Use
  Company Number: FR-JNJFOC-20060501108

PATIENT
  Age: 42 Year
  Sex: Female
  Weight: 80 kg

DRUGS (7)
  1. HALDOL [Suspect]
     Route: 048
  2. DEPAMIDE [Suspect]
     Route: 048
  3. LEVOTHYROX [Suspect]
     Route: 048
  4. LEVOTHYROX [Suspect]
     Indication: HYPOTHYROIDISM
     Route: 048
  5. PREVISCAN [Suspect]
     Route: 048
  6. PREVISCAN [Suspect]
     Indication: DRUG USE FOR UNKNOWN INDICATION
     Route: 048
  7. STILNOX [Suspect]
     Indication: SLEEP DISORDER
     Route: 048

REACTIONS (5)
  - COAGULATION TIME PROLONGED [None]
  - DRUG INTERACTION [None]
  - INTERNATIONAL NORMALISED RATIO INCREASED [None]
  - PHLEBITIS [None]
  - VENOUS INSUFFICIENCY [None]
